FAERS Safety Report 13751175 (Version 1)
Quarter: 2017Q3

REPORT INFORMATION
  Report Type: Spontaneous
  Country: US (occurrence: US)
  Receive Date: 20170713
  Receipt Date: 20170713
  Transmission Date: 20171127
  Serious: No
  Sender: FDA-Public Use
  Company Number: US-ASTELLAS-2017US013813

PATIENT
  Sex: Female

DRUGS (2)
  1. MYRBETRIQ [Suspect]
     Active Substance: MIRABEGRON
     Indication: BLADDER SPASM
     Dosage: UNK UNK, UNKNOWN FREQ.
     Route: 048
  2. MYRBETRIQ [Suspect]
     Active Substance: MIRABEGRON
     Route: 048
     Dates: start: 201704

REACTIONS (3)
  - Treatment noncompliance [Unknown]
  - Off label use [Unknown]
  - Pollakiuria [Unknown]
